FAERS Safety Report 10007745 (Version 1)
Quarter: 2014Q1

REPORT INFORMATION
  Report Type: Spontaneous
  Country: US (occurrence: US)
  Receive Date: 20140313
  Receipt Date: 20140313
  Transmission Date: 20141002
  Serious: No
  Sender: FDA-Public Use
  Company Number: US-BAYER-2014-038453

PATIENT
  Age: 48 Year
  Sex: Male
  Weight: 134.69 kg

DRUGS (1)
  1. ALEVE CAPLET [Suspect]
     Dosage: 1 DF, BID
     Route: 048
     Dates: start: 20140306

REACTIONS (1)
  - Drug ineffective [None]
